FAERS Safety Report 24573359 (Version 1)
Quarter: 2024Q4

REPORT INFORMATION
  Report Type: Spontaneous
  Country: KR (occurrence: KR)
  Receive Date: 20241101
  Receipt Date: 20241101
  Transmission Date: 20250115
  Serious: Yes (Death)
  Sender: MALLINCKRODT
  Company Number: KR-MALLINCKRODT-MNK202406614

PATIENT
  Age: 0 Day
  Sex: Female

DRUGS (3)
  1. NITRIC OXIDE [Suspect]
     Active Substance: NITRIC OXIDE
     Indication: Neonatal respiratory distress syndrome
     Dosage: UNKNOWN
     Route: 055
     Dates: start: 20241023, end: 20241025
  2. NITRIC OXIDE [Suspect]
     Active Substance: NITRIC OXIDE
     Indication: Newborn persistent pulmonary hypertension
  3. NITRIC OXIDE [Suspect]
     Active Substance: NITRIC OXIDE
     Indication: Respiratory failure

REACTIONS (5)
  - Neonatal respiratory distress syndrome [Fatal]
  - Newborn persistent pulmonary hypertension [Fatal]
  - Respiratory failure [Fatal]
  - Condition aggravated [Fatal]
  - Neonatal asphyxia [Fatal]

NARRATIVE: CASE EVENT DATE: 20241001
